FAERS Safety Report 23636995 (Version 2)
Quarter: 2024Q2

REPORT INFORMATION
  Report Type: Report from Study
  Country: MY (occurrence: MY)
  Receive Date: 20240315
  Receipt Date: 20240516
  Transmission Date: 20240715
  Serious: Yes (Other)
  Sender: FDA-Public Use
  Company Number: MY-IPSEN Group, Research and Development-2024-04009

PATIENT
  Age: 66 Year
  Sex: Male
  Weight: 77 kg

DRUGS (2)
  1. CABOMETYX [Suspect]
     Active Substance: CABOZANTINIB S-MALATE
     Indication: Renal cell carcinoma
     Dosage: 40 MG, QD
     Route: 048
     Dates: start: 202211
  2. CABOMETYX [Suspect]
     Active Substance: CABOZANTINIB S-MALATE
     Dosage: 40 MG, 5 DAYS ON AND 2 DAYS OFF
     Route: 048

REACTIONS (9)
  - Oedema [Recovering/Resolving]
  - Blister [Recovering/Resolving]
  - Gait disturbance [Recovering/Resolving]
  - Protein urine present [Recovering/Resolving]
  - Hypertension [Recovering/Resolving]
  - Diarrhoea [Recovering/Resolving]
  - Pain in extremity [Recovering/Resolving]
  - Hypothyroidism [Recovering/Resolving]
  - Off label use [Unknown]

NARRATIVE: CASE EVENT DATE: 20221201
